FAERS Safety Report 5639392-4 (Version None)
Quarter: 2008Q1

REPORT INFORMATION
  Report Type: 
  Country: None (occurrence: None)
  Receive Date: 20080226
  Receipt Date: 20080216
  Transmission Date: 20080703
  Serious: Yes (Other)
  Sender: FDA-Public Use
  Company Number: US-PFIZER INC-2008011802

PATIENT
  Sex: Female
  Weight: 64.4 kg

DRUGS (7)
  1. LIPITOR [Suspect]
     Indication: BLOOD CHOLESTEROL INCREASED
     Route: 048
     Dates: start: 20020101, end: 20080101
  2. VALSARTAN [Concomitant]
  3. CLARITIN [Concomitant]
     Dosage: TEXT:20 MG
  4. RANITIDINE [Concomitant]
     Dosage: TEXT:150 MG
  5. GEODON [Concomitant]
  6. TRIAZOLAM [Concomitant]
  7. KLONOPIN [Concomitant]

REACTIONS (6)
  - ABASIA [None]
  - GAIT DISTURBANCE [None]
  - MUSCLE SPASMS [None]
  - MUSCULAR WEAKNESS [None]
  - OEDEMA PERIPHERAL [None]
  - PAIN IN EXTREMITY [None]
